FAERS Safety Report 9520519 (Version 1)
Quarter: 2013Q3

REPORT INFORMATION
  Report Type: Spontaneous
  Country: FI (occurrence: FI)
  Receive Date: 20130913
  Receipt Date: 20130913
  Transmission Date: 20140515
  Serious: Yes (Hospitalization)
  Sender: FDA-Public Use
  Company Number: FI-ROCHE-1274835

PATIENT
  Age: 69 Year
  Sex: Female

DRUGS (3)
  1. AVASTIN [Suspect]
     Indication: OVARIAN CANCER
     Route: 065
     Dates: start: 201301, end: 201307
  2. EPIRUBICIN HYDROCHLORIDE [Suspect]
     Indication: OVARIAN CANCER
     Route: 065
     Dates: start: 201301, end: 201307
  3. METHOTREXATE [Concomitant]
     Route: 065
     Dates: start: 201306, end: 201306

REACTIONS (2)
  - Cardiomyopathy [Unknown]
  - Disease progression [Unknown]
